FAERS Safety Report 24862856 (Version 1)
Quarter: 2025Q1

REPORT INFORMATION
  Report Type: Spontaneous
  Country: US (occurrence: US)
  Receive Date: 20250120
  Receipt Date: 20250120
  Transmission Date: 20250409
  Serious: Yes (Hospitalization)
  Sender: TORRENT PHARMA INC.
  Company Number: US-TORRENT-00013960

PATIENT
  Age: 40 Year
  Sex: Female

DRUGS (1)
  1. SILDENAFIL [Suspect]
     Active Substance: SILDENAFIL
     Indication: Pulmonary arterial hypertension
     Route: 065

REACTIONS (1)
  - Adverse event [Recovering/Resolving]
